FAERS Safety Report 4500156-6 (Version None)
Quarter: 2004Q4

REPORT INFORMATION
  Report Type: 
  Country: None (occurrence: None)
  Receive Date: 20041112
  Receipt Date: 20041104
  Transmission Date: 20050328
  Serious: Yes (Death)
  Sender: FDA-Public Use
  Company Number: JP-JNJFOC-20041102410

PATIENT
  Age: 80 Year
  Sex: Male

DRUGS (3)
  1. CRAVIT [Suspect]
     Indication: URINARY TRACT INFECTION
     Route: 049
     Dates: end: 20041029
  2. VOLTAREN [Suspect]
     Indication: DRUG USE FOR UNKNOWN INDICATION
     Route: 054
  3. BUP-4 [Suspect]
     Indication: DRUG USE FOR UNKNOWN INDICATION
     Route: 049

REACTIONS (1)
  - BLOOD CREATINE PHOSPHOKINASE INCREASED [None]
